FAERS Safety Report 21239917 (Version 1)
Quarter: 2022Q3

REPORT INFORMATION
  Report Type: Report from Study
  Country: US (occurrence: US)
  Receive Date: 20220822
  Receipt Date: 20220822
  Transmission Date: 20221026
  Serious: Yes (Other)
  Sender: FDA-Public Use
  Company Number: US-TAKEDA-2018TUS004912

PATIENT
  Sex: Male
  Weight: 86 kg

DRUGS (6)
  1. PONATINIB [Suspect]
     Active Substance: PONATINIB
     Indication: Acute lymphocytic leukaemia
     Dosage: 45 MILLIGRAM, QD
     Route: 048
     Dates: start: 20180209
  2. PONATINIB [Suspect]
     Active Substance: PONATINIB
     Indication: Acute myeloid leukaemia
     Dosage: 30 MILLIGRAM, QD
     Route: 048
  3. PONATINIB [Suspect]
     Active Substance: PONATINIB
     Indication: Chronic myeloid leukaemia
     Dosage: 15 MILLIGRAM, QD
     Route: 048
  4. PONATINIB [Suspect]
     Active Substance: PONATINIB
     Indication: Blast crisis in myelogenous leukaemia
  5. DASATINIB [Concomitant]
     Active Substance: DASATINIB
     Dosage: UNK
     Route: 065
  6. LEVOTHYROXINE [Concomitant]
     Active Substance: LEVOTHYROXINE
     Indication: Thyroid disorder
     Dosage: 88 MICROGRAM

REACTIONS (24)
  - Thyroid disorder [Unknown]
  - Ulcerative keratitis [Unknown]
  - Prostatic specific antigen increased [Unknown]
  - Eye disorder [Unknown]
  - Eye infection [Unknown]
  - Eyelid margin crusting [Unknown]
  - Lacrimation increased [Unknown]
  - Nocturia [Unknown]
  - Sleep disorder [Unknown]
  - Hepatomegaly [Unknown]
  - Prostatomegaly [Unknown]
  - Memory impairment [Unknown]
  - Malaise [Unknown]
  - Anxiety [Unknown]
  - Hyperhidrosis [Unknown]
  - Night sweats [Unknown]
  - Pain [Recovering/Resolving]
  - Hepatic enzyme increased [Unknown]
  - Fatigue [Unknown]
  - Dry eye [Unknown]
  - Dry skin [Unknown]
  - Rash [Unknown]
  - Blood pressure increased [Unknown]
  - Off label use [Unknown]
